FAERS Safety Report 7764613-1 (Version None)
Quarter: 2011Q3

REPORT INFORMATION
  Report Type: 
  Country: None (occurrence: None)
  Receive Date: 20110921
  Receipt Date: 20110913
  Transmission Date: 20111222
  Serious: Yes (Hospitalization)
  Sender: FDA-Public Use
  Company Number: PHEH2011US04092

PATIENT
  Age: 5 Year
  Sex: Male
  Weight: 17.234 kg

DRUGS (2)
  1. TOBI [Suspect]
     Dosage: 300 MG, BID (28 DAYS ON AND 28 DAYS OFF)
     Dates: start: 20110910
  2. PULMOZYME [Concomitant]
     Dosage: UNK UKN, UNK

REACTIONS (1)
  - UPPER RESPIRATORY TRACT INFECTION [None]
